FAERS Safety Report 13929682 (Version 12)
Quarter: 2024Q1

REPORT INFORMATION
  Report Type: Spontaneous
  Country: CA (occurrence: None)
  Receive Date: 20170901
  Receipt Date: 20240229
  Transmission Date: 20240410
  Serious: Yes (Hospitalization, Other)
  Sender: FDA-Public Use
  Company Number: CA-ORION CORPORATION ORION PHARMA-TREX2017-2697

PATIENT
  Age: 67 Year
  Sex: Female
  Weight: 73 kg

DRUGS (73)
  1. METHOTREXATE [Suspect]
     Active Substance: METHOTREXATE
     Indication: Rheumatoid arthritis
     Dates: start: 2007
  2. METHOTREXATE [Suspect]
     Active Substance: METHOTREXATE
     Dates: start: 201102, end: 201105
  3. METHOTREXATE [Suspect]
     Active Substance: METHOTREXATE
  4. METHOTREXATE [Suspect]
     Active Substance: METHOTREXATE
  5. METHOTREXATE [Suspect]
     Active Substance: METHOTREXATE
  6. METHOTREXATE [Suspect]
     Active Substance: METHOTREXATE
  7. ENBREL [Suspect]
     Active Substance: ETANERCEPT
     Indication: Rheumatoid arthritis
     Dates: start: 201201, end: 201204
  8. ENBREL [Suspect]
     Active Substance: ETANERCEPT
  9. ACTEMRA [Suspect]
     Active Substance: TOCILIZUMAB
     Indication: Rheumatoid arthritis
  10. ACTEMRA [Suspect]
     Active Substance: TOCILIZUMAB
  11. ACTEMRA [Suspect]
     Active Substance: TOCILIZUMAB
     Dates: start: 20140314, end: 20140717
  12. ACTEMRA [Suspect]
     Active Substance: TOCILIZUMAB
  13. HUMIRA [Suspect]
     Active Substance: ADALIMUMAB
     Indication: Rheumatoid arthritis
     Dosage: 3/C G2
     Dates: start: 201204
  14. HUMIRA [Suspect]
     Active Substance: ADALIMUMAB
  15. ORENCIA [Suspect]
     Active Substance: ABATACEPT
     Indication: Rheumatoid arthritis
  16. ORENCIA [Suspect]
     Active Substance: ABATACEPT
  17. ORENCIA [Suspect]
     Active Substance: ABATACEPT
  18. RITUXAN [Suspect]
     Active Substance: RITUXIMAB
     Indication: Rheumatoid arthritis
     Dates: start: 20120626, end: 20120712
  19. RITUXAN [Suspect]
     Active Substance: RITUXIMAB
  20. RITUXAN [Suspect]
     Active Substance: RITUXIMAB
  21. RITUXAN [Suspect]
     Active Substance: RITUXIMAB
  22. XELJANZ [Suspect]
     Active Substance: TOFACITINIB CITRATE
     Indication: Rheumatoid arthritis
     Dates: start: 20150528
  23. XELJANZ [Suspect]
     Active Substance: TOFACITINIB CITRATE
  24. REMICADE [Suspect]
     Active Substance: INFLIXIMAB
     Indication: Rheumatoid arthritis
  25. REMICADE [Suspect]
     Active Substance: INFLIXIMAB
     Indication: Crohn^s disease
  26. REMICADE [Suspect]
     Active Substance: INFLIXIMAB
  27. REMICADE [Suspect]
     Active Substance: INFLIXIMAB
  28. LEFLUNOMIDE [Suspect]
     Active Substance: LEFLUNOMIDE
     Indication: Rheumatoid arthritis
  29. LEFLUNOMIDE [Suspect]
     Active Substance: LEFLUNOMIDE
  30. PLAQUENIL [Suspect]
     Active Substance: HYDROXYCHLOROQUINE SULFATE
     Indication: Rheumatoid arthritis
  31. RITUXIMAB [Suspect]
     Active Substance: RITUXIMAB
     Indication: Rheumatoid arthritis
  32. RITUXIMAB [Suspect]
     Active Substance: RITUXIMAB
  33. RITUXIMAB [Suspect]
     Active Substance: RITUXIMAB
  34. LEFLUNOMIDE [Suspect]
     Active Substance: LEFLUNOMIDE
     Indication: Rheumatoid arthritis
  35. HYDROXYCHLOROQUINE SULFATE [Suspect]
     Active Substance: HYDROXYCHLOROQUINE SULFATE
     Indication: Rheumatoid arthritis
  36. HYDROXYCHLOROQUINE SULFATE [Suspect]
     Active Substance: HYDROXYCHLOROQUINE SULFATE
  37. HYDROXYCHLOROQUINE SULFATE [Suspect]
     Active Substance: HYDROXYCHLOROQUINE SULFATE
  38. HYDROXYCHLOROQUINE SULFATE [Suspect]
     Active Substance: HYDROXYCHLOROQUINE SULFATE
  39. MAGNESIUM OXIDE [Suspect]
     Active Substance: MAGNESIUM OXIDE
     Indication: Product used for unknown indication
  40. LENALIDOMIDE [Suspect]
     Active Substance: LENALIDOMIDE
     Indication: Rheumatoid arthritis
  41. LENALIDOMIDE [Suspect]
     Active Substance: LENALIDOMIDE
  42. LENALIDOMIDE [Suspect]
     Active Substance: LENALIDOMIDE
  43. BUDESONIDE [Suspect]
     Active Substance: BUDESONIDE
     Indication: Product used for unknown indication
  44. PERIOGARD [Suspect]
     Active Substance: CHLORHEXIDINE GLUCONATE
     Indication: Product used for unknown indication
  45. HYDROXYCHLOROQUINE [Concomitant]
     Active Substance: HYDROXYCHLOROQUINE
     Indication: Rheumatoid arthritis
     Dates: start: 2007
  46. HYDROXYCHLOROQUINE [Concomitant]
     Active Substance: HYDROXYCHLOROQUINE
  47. LEFLUNOMIDE [Concomitant]
     Active Substance: LEFLUNOMIDE
     Dates: start: 200105, end: 201110
  48. LEFLUNOMIDE [Concomitant]
     Active Substance: LEFLUNOMIDE
  49. LEFLUNOMIDE [Concomitant]
     Active Substance: LEFLUNOMIDE
  50. HYDROXYCHLOROQUINE SULFATE [Concomitant]
     Active Substance: HYDROXYCHLOROQUINE SULFATE
  51. HYDROXYCHLOROQUINE SULFATE [Concomitant]
     Active Substance: HYDROXYCHLOROQUINE SULFATE
  52. PREDNISONE [Concomitant]
     Active Substance: PREDNISONE
     Indication: Rheumatoid arthritis
  53. PREDNISONE [Concomitant]
     Active Substance: PREDNISONE
  54. TOCILIZUMAB [Concomitant]
     Active Substance: TOCILIZUMAB
  55. GOLD [Concomitant]
     Active Substance: GOLD
  56. LYRICA [Concomitant]
     Active Substance: PREGABALIN
  57. LYRICA [Concomitant]
     Active Substance: PREGABALIN
  58. TRAZODONE [Concomitant]
     Active Substance: TRAZODONE HYDROCHLORIDE
  59. TRAZODONE [Concomitant]
     Active Substance: TRAZODONE HYDROCHLORIDE
  60. SIMPONI [Concomitant]
     Active Substance: GOLIMUMAB
  61. SERTRALINE HYDROCHLORIDE [Concomitant]
     Active Substance: SERTRALINE HYDROCHLORIDE
  62. RAMIPRIL [Concomitant]
     Active Substance: RAMIPRIL
  63. PROPRANOLOL [Concomitant]
     Active Substance: PROPRANOLOL HYDROCHLORIDE
  64. PRAMIPEXOLE DIHYDROCHLORIDE [Concomitant]
     Active Substance: PRAMIPEXOLE DIHYDROCHLORIDE
     Indication: Rheumatoid arthritis
  65. PRAMIPEXOLE DIHYDROCHLORIDE [Concomitant]
     Active Substance: PRAMIPEXOLE DIHYDROCHLORIDE
     Indication: Condition aggravated
  66. IRON [Concomitant]
     Active Substance: IRON
  67. ERGOCALCIFEROL [Concomitant]
     Active Substance: ERGOCALCIFEROL
  68. CYANOCOBALAMIN [Concomitant]
     Active Substance: CYANOCOBALAMIN
  69. ALENDRONATE SODIUM [Concomitant]
     Active Substance: ALENDRONATE SODIUM
  70. AMLODIPINE BESYLATE [Concomitant]
     Active Substance: AMLODIPINE BESYLATE
  71. ARAVA [Concomitant]
     Active Substance: LEFLUNOMIDE
  72. ATENOLOL [Concomitant]
     Active Substance: ATENOLOL
  73. CODEINE [Concomitant]
     Active Substance: CODEINE

REACTIONS (24)
  - Drug ineffective [Not Recovered/Not Resolved]
  - Contraindicated product administered [Not Recovered/Not Resolved]
  - Product use issue [Unknown]
  - Treatment failure [Not Recovered/Not Resolved]
  - Off label use [Not Recovered/Not Resolved]
  - C-reactive protein increased [Not Recovered/Not Resolved]
  - Drug hypersensitivity [Not Recovered/Not Resolved]
  - Hypertension [Not Recovered/Not Resolved]
  - Red blood cell sedimentation rate increased [Not Recovered/Not Resolved]
  - Synovitis [Not Recovered/Not Resolved]
  - Pulmonary fibrosis [Not Recovered/Not Resolved]
  - Rheumatoid factor positive [Not Recovered/Not Resolved]
  - Pneumonia [Not Recovered/Not Resolved]
  - Arthralgia [Not Recovered/Not Resolved]
  - Arthropathy [Not Recovered/Not Resolved]
  - Condition aggravated [Not Recovered/Not Resolved]
  - Joint swelling [Not Recovered/Not Resolved]
  - Loss of personal independence in daily activities [Not Recovered/Not Resolved]
  - Rheumatoid arthritis [Not Recovered/Not Resolved]
  - Hepatic enzyme increased [Not Recovered/Not Resolved]
  - Insomnia [Not Recovered/Not Resolved]
  - Arthritis [Not Recovered/Not Resolved]
  - Abdominal pain [Not Recovered/Not Resolved]
  - Headache [Not Recovered/Not Resolved]
